FAERS Safety Report 9930007 (Version 2)
Quarter: 2014Q1

REPORT INFORMATION
  Report Type: Spontaneous
  Country: US (occurrence: US)
  Receive Date: 20140227
  Receipt Date: 20140227
  Transmission Date: 20141002
  Serious: Yes (Disabling)
  Sender: FDA-Public Use
  Company Number: US-GE HEALTHCARE MEDICAL DIAGNOSTICS-OSCN-PR-0808S-0503

PATIENT
  Age: 59 Year
  Sex: Male

DRUGS (10)
  1. OMNISCAN [Suspect]
     Indication: CENTRAL NERVOUS SYSTEM LESION
     Route: 042
     Dates: start: 20030506, end: 20030506
  2. OMNISCAN [Suspect]
     Indication: BACK PAIN
     Route: 042
     Dates: start: 20030922, end: 20030922
  3. OMNISCAN [Suspect]
     Indication: CEREBRAL DISORDER
     Route: 042
     Dates: start: 20040730, end: 20040730
  4. OMNISCAN [Suspect]
     Indication: BRAIN MASS
     Route: 042
     Dates: start: 20040813, end: 20040813
  5. OMNISCAN [Suspect]
     Indication: INTERVERTEBRAL DISCITIS
     Route: 042
     Dates: start: 20050105, end: 20050105
  6. OMNISCAN [Suspect]
     Route: 042
     Dates: start: 20050107, end: 20050107
  7. OMNISCAN [Suspect]
     Route: 042
     Dates: start: 20050311, end: 20050311
  8. MAGNEVIST [Suspect]
     Indication: PRODUCT USED FOR UNKNOWN INDICATION
     Route: 042
     Dates: start: 20040924, end: 20040924
  9. MAGNEVIST [Suspect]
     Route: 042
     Dates: start: 20050708, end: 20050708
  10. MAGNEVIST [Suspect]
     Route: 042
     Dates: start: 20050713, end: 20050713

REACTIONS (1)
  - Nephrogenic systemic fibrosis [Not Recovered/Not Resolved]
